FAERS Safety Report 4349064-4 (Version None)
Quarter: 2004Q2

REPORT INFORMATION
  Report Type: 
  Country: None (occurrence: None)
  Receive Date: 20040428
  Receipt Date: 20031209
  Transmission Date: 20050107
  Serious: Yes (Hospitalization)
  Sender: FDA-Public Use
  Company Number: IT-BRISTOL-MYERS SQUIBB COMPANY-12453445

PATIENT
  Age: 43 Year
  Sex: Female

DRUGS (5)
  1. ATAZANAVIR [Suspect]
     Indication: HIV INFECTION
     Dosage: INTERRUPTED ON 13-OCT-2003.
     Dates: start: 20030402
  2. T-20 [Suspect]
     Indication: HIV INFECTION
     Dates: start: 20030402, end: 20031013
  3. TENOFOVIR [Suspect]
     Indication: HIV INFECTION
     Dates: start: 20030402, end: 20031013
  4. AZT [Suspect]
     Indication: HIV INFECTION
     Dates: start: 20030905, end: 20031013
  5. RITONAVIR [Suspect]
     Indication: HIV INFECTION
     Dates: start: 20031001, end: 20031013

REACTIONS (3)
  - ALANINE AMINOTRANSFERASE INCREASED [None]
  - ASPARTATE AMINOTRANSFERASE INCREASED [None]
  - CHOLECYSTITIS [None]
